FAERS Safety Report 10009209 (Version 1)
Quarter: 2014Q1

REPORT INFORMATION
  Report Type: Spontaneous
  Country: US (occurrence: US)
  Receive Date: 20140313
  Receipt Date: 20140313
  Transmission Date: 20141002
  Serious: Yes (Other)
  Sender: FDA-Public Use
  Company Number: US-JNJFOC-20140303829

PATIENT
  Age: 72 Year
  Sex: Male
  Weight: 85.28 kg

DRUGS (6)
  1. INVOKANA [Suspect]
     Indication: TYPE 2 DIABETES MELLITUS
     Route: 048
     Dates: start: 201402
  2. INVOKANA [Suspect]
     Indication: TYPE 2 DIABETES MELLITUS
     Route: 048
     Dates: start: 20140207, end: 201402
  3. JANUMET [Concomitant]
     Indication: DIABETES MELLITUS
     Dosage: 50MG/1000MG
     Route: 048
     Dates: start: 201402
  4. FLOMAX [Concomitant]
     Indication: POLLAKIURIA
     Route: 048
  5. NADOL [Concomitant]
     Indication: LIVER DISORDER
     Route: 048
  6. OMEPRAZOLE [Concomitant]
     Indication: GASTROOESOPHAGEAL REFLUX DISEASE
     Route: 048

REACTIONS (2)
  - Urticaria [Recovering/Resolving]
  - Nausea [Not Recovered/Not Resolved]
